FAERS Safety Report 7128138-9 (Version None)
Quarter: 2010Q4

REPORT INFORMATION
  Report Type: 
  Country: None (occurrence: None)
  Receive Date: 20101130
  Receipt Date: 20101119
  Transmission Date: 20110411
  Serious: Yes (Other)
  Sender: FDA-Public Use
  Company Number: FR-JNJFOC-20101004953

PATIENT
  Age: 28 Year
  Sex: Female
  Weight: 65 kg

DRUGS (8)
  1. REMICADE [Suspect]
     Indication: RHEUMATOID ARTHRITIS
     Dosage: DOSAGE FOR THE LAST 2 INFUSIONS (11 INFUSIONS TOTAL)
     Route: 042
  2. REMICADE [Suspect]
     Route: 042
  3. REMICADE [Suspect]
     Indication: UVEITIS
     Dosage: DOSAGE FOR THE LAST 2 INFUSIONS (11 INFUSIONS TOTAL)
     Route: 042
  4. REMICADE [Suspect]
     Route: 042
  5. REMICADE [Suspect]
     Indication: CROHN'S DISEASE
     Route: 042
  6. REMICADE [Suspect]
     Dosage: DOSAGE FOR THE LAST 2 INFUSIONS (11 INFUSIONS TOTAL)
     Route: 042
  7. LEVOTHYROXINE SODIUM [Concomitant]
  8. CORTICOSTEROIDS [Concomitant]

REACTIONS (1)
  - BLOOD CREATINE PHOSPHOKINASE INCREASED [None]
